FAERS Safety Report 8275673 (Version 7)
Quarter: 2013Q1

REPORT INFORMATION
  Report Type: Spontaneous
  Country: US (occurrence: US)
  Receive Date: 20111205
  Receipt Date: 20130129
  Transmission Date: 20140127
  Serious: Yes (Death, Hospitalization, Other)
  Sender: FDA-Public Use
  Company Number: US-ACTELION-A-US2011-57531

PATIENT
  Age: 71 Year
  Sex: Female

DRUGS (5)
  1. TRACLEER [Suspect]
     Indication: PULMONARY ARTERIAL HYPERTENSION
     Dosage: UNK
     Route: 048
     Dates: end: 201207
  2. REVATIO [Concomitant]
  3. REMODULIN [Concomitant]
  4. SPIRONOLACTONE [Concomitant]
  5. NIFEDIPINE [Concomitant]

REACTIONS (15)
  - Respiratory failure [Fatal]
  - Pulmonary arterial hypertension [Fatal]
  - Disease progression [Fatal]
  - Pulmonary congestion [Unknown]
  - Dyspnoea [Unknown]
  - Syncope [Unknown]
  - Oxygen saturation abnormal [Unknown]
  - Night sweats [Unknown]
  - Oedema peripheral [Unknown]
  - Malaise [Unknown]
  - Fatigue [Unknown]
  - Lethargy [Unknown]
  - Dyspnoea exertional [Unknown]
  - Fluid retention [Unknown]
  - Palpitations [Unknown]
